FAERS Safety Report 8785614 (Version 1)
Quarter: 2012Q4

REPORT INFORMATION
  Report Type: 
  Country: US (occurrence: US)
  Receive Date: 20120914
  Receipt Date: 20120914
  Transmission Date: 20130627
  Serious: Yes (Other)
  Sender: FDA-Public Use
  Company Number: US-BAYER-2012-093311

PATIENT
  Sex: Female

DRUGS (1)
  1. MIRENA [Suspect]
     Dosage: 20 mcg/24hr, CONT
     Route: 015

REACTIONS (4)
  - Loop electrosurgical excision procedure [None]
  - Herpes virus infection [None]
  - Vaginal infection [None]
  - Vaginal odour [None]
